FAERS Safety Report 9249470 (Version 4)
Quarter: 2013Q4

REPORT INFORMATION
  Report Type: Spontaneous
  Country: JP (occurrence: JP)
  Receive Date: 20130423
  Receipt Date: 20131010
  Transmission Date: 20140711
  Serious: Yes (Hospitalization)
  Sender: FDA-Public Use
  Company Number: JP-VERTEX PHARMACEUTICALS INC.-2013-005276

PATIENT
  Age: 72 Year
  Sex: Female

DRUGS (16)
  1. TELAVIC [Suspect]
     Indication: CHRONIC HEPATITIS C
     Dosage: 1500 MG, QD
     Route: 048
     Dates: start: 20130130, end: 20130320
  2. TELAVIC [Suspect]
     Dosage: 1250 MG, QD
     Route: 048
     Dates: start: 20130321, end: 20130329
  3. PEGINTRON [Suspect]
     Indication: CHRONIC HEPATITIS C
     Dosage: 1.05 ?G/KG, QW
     Route: 058
     Dates: start: 20130130, end: 20130130
  4. PEGINTRON [Suspect]
     Dosage: 1.23 ?G/KG, QW
     Route: 058
     Dates: start: 20130206, end: 20130206
  5. PEGINTRON [Suspect]
     Dosage: 1.5 ?G/KG, QW
     Route: 058
     Dates: start: 20130213, end: 20130321
  6. REBETOL [Suspect]
     Indication: CHRONIC HEPATITIS C
     Dosage: 400 MG, QD
     Route: 048
     Dates: start: 20130130, end: 20130205
  7. REBETOL [Suspect]
     Dosage: 500 MG, QD
     Route: 048
     Dates: start: 20130206, end: 20130226
  8. REBETOL [Suspect]
     Dosage: 400 MG, QD
     Route: 048
     Dates: start: 20130227, end: 20130305
  9. REBETOL [Suspect]
     Dosage: 500 MG, QD
     Route: 048
     Dates: start: 20130306, end: 20130326
  10. REBETOL [Suspect]
     Dosage: 400 MG, QD
     Route: 048
     Dates: start: 20130327, end: 20130329
  11. NEO-MINOPHAGEN C [Concomitant]
     Dosage: 40 ML, QD
     Route: 042
     Dates: end: 20130329
  12. URSO [Concomitant]
     Dosage: 600 MG, QD
     Route: 048
  13. NORVASC [Concomitant]
     Dosage: 5 MG, QD
     Route: 048
  14. FLUITRAN [Concomitant]
     Dosage: 1 MG, QD
     Route: 048
  15. MEVALOTIN [Concomitant]
     Dosage: 5 MG, QD
     Route: 048
  16. BIO-THREE [Concomitant]
     Dosage: UNK
     Route: 048

REACTIONS (3)
  - Interstitial lung disease [Recovered/Resolved]
  - Haemoglobin decreased [Recovered/Resolved]
  - Pruritus [Recovered/Resolved]
